FAERS Safety Report 4455969-6 (Version None)
Quarter: 2004Q3

REPORT INFORMATION
  Report Type: 
  Country: None (occurrence: None)
  Receive Date: 20040922
  Receipt Date: 20030508
  Transmission Date: 20050211
  Serious: Yes (Other)
  Sender: FDA-Public Use
  Company Number: GB-GLAXOSMITHKLINE-B0299305A

PATIENT
  Age: 9 Year
  Sex: Male
  Weight: 27 kg

DRUGS (3)
  1. BECOTIDE [Suspect]
     Indication: ASTHMA
     Dosage: 100MCG PER DAY
     Route: 055
  2. VENTOLIN [Suspect]
     Indication: ASTHMA
     Dosage: 2PUFF FOUR TIMES PER DAY
     Route: 055
  3. SEREVENT [Concomitant]
     Indication: ASTHMA
     Route: 055
     Dates: end: 20030515

REACTIONS (6)
  - ASTHMA [None]
  - NASAL POLYPS [None]
  - OBSTRUCTIVE AIRWAYS DISORDER [None]
  - STRIDOR [None]
  - THROAT TIGHTNESS [None]
  - WHEEZING [None]
